FAERS Safety Report 8268916 (Version 5)
Quarter: 2013Q1

REPORT INFORMATION
  Report Type: Report from Study
  Country: CA (occurrence: CA)
  Receive Date: 20111130
  Receipt Date: 20130308
  Transmission Date: 20140127
  Serious: Yes (Other)
  Sender: FDA-Public Use
  Company Number: CA-ROCHE-1013372

PATIENT
  Sex: Female
  Weight: 65 kg

DRUGS (10)
  1. ACTEMRA [Suspect]
     Indication: RHEUMATOID ARTHRITIS
     Route: 042
     Dates: start: 20110519, end: 20110908
  2. ACTEMRA [Suspect]
     Route: 042
     Dates: start: 20110908, end: 20110908
  3. ACTEMRA [Suspect]
     Route: 042
     Dates: start: 20111121, end: 20120924
  4. ACTEMRA [Suspect]
     Route: 065
     Dates: start: 20121122
  5. ACTONEL [Concomitant]
     Indication: OSTEOPOROSIS
     Route: 065
  6. GABAPENTIN [Concomitant]
     Indication: HEADACHE
     Route: 048
  7. AMITRIPTYLINE [Concomitant]
     Indication: HEADACHE
     Route: 048
  8. METOPROLOL [Concomitant]
     Indication: HYPERTENSION
     Route: 048
  9. TYLENOL [Concomitant]
     Route: 065
  10. NEXIUM [Concomitant]
     Route: 048

REACTIONS (5)
  - Ulcerative keratitis [Not Recovered/Not Resolved]
  - Rheumatoid arthritis [Not Recovered/Not Resolved]
  - Eye inflammation [Unknown]
  - Blindness [Unknown]
  - Corneal disorder [Unknown]
